FAERS Safety Report 25114335 (Version 1)
Quarter: 2025Q1

REPORT INFORMATION
  Report Type: Spontaneous
  Country: US (occurrence: None)
  Receive Date: 20250324
  Receipt Date: 20250324
  Transmission Date: 20250409
  Serious: Yes (Hospitalization)
  Sender: FDA-CTU
  Company Number: None

PATIENT
  Sex: Female

DRUGS (1)
  1. OPSUMIT [Suspect]
     Active Substance: MACITENTAN
     Indication: Pulmonary oedema
     Dosage: 10 MG DAILY ORAL
     Route: 048

REACTIONS (4)
  - Pulmonary arterial hypertension [None]
  - Dyspnoea [None]
  - Pulmonary oedema [None]
  - Pneumonia [None]
